FAERS Safety Report 4836061-5 (Version None)
Quarter: 2005Q4

REPORT INFORMATION
  Report Type: 
  Country: None (occurrence: None)
  Receive Date: 20051123
  Receipt Date: 20051004
  Transmission Date: 20060501
  Serious: Yes (Death, Hospitalization, Other)
  Sender: FDA-Public Use
  Company Number: US-MERCK-0510USA03135

PATIENT
  Age: 86 Year
  Sex: Male
  Weight: 66 kg

DRUGS (26)
  1. NUTRAJOINT [Concomitant]
     Route: 065
  2. METHOCARBAMOL [Concomitant]
     Route: 065
  3. VIOXX [Suspect]
     Indication: ARTHRITIS
     Route: 048
     Dates: start: 20010409, end: 20040930
  4. SINGULAIR [Concomitant]
     Route: 065
  5. KLOR-CON [Concomitant]
     Route: 065
  6. HYDROCHLOROTHIAZIDE [Concomitant]
     Route: 065
  7. BENZONATATE [Concomitant]
     Route: 065
  8. NEURONTIN [Concomitant]
     Route: 065
  9. ZANTAC [Concomitant]
     Route: 065
  10. VENTILAN (ALBUTEROL) [Concomitant]
     Route: 065
  11. PROSCAR [Concomitant]
     Route: 065
  12. FLOMAX (MORNIFLUMATE) [Concomitant]
     Route: 065
  13. QUININE [Concomitant]
     Route: 065
  14. ASPIRIN [Concomitant]
     Route: 065
  15. GASTROINTESTINAL PREPARATIONS (UNSPECIFIED) [Concomitant]
     Route: 065
  16. OS-CAL [Concomitant]
     Route: 065
  17. NULYTELY [Concomitant]
     Route: 065
  18. DIGITEK [Concomitant]
     Route: 065
  19. THEO-24 [Concomitant]
     Route: 065
  20. XALATAN [Concomitant]
     Route: 065
  21. TRUSOPT [Concomitant]
     Route: 065
  22. COMBIVENT [Concomitant]
     Route: 065
  23. ALPHAGAN [Concomitant]
     Route: 065
  24. OCUFLOX [Concomitant]
     Route: 065
  25. XOPENEX [Concomitant]
     Route: 065
  26. VITAMINS (UNSPECIFIED) [Concomitant]
     Route: 065

REACTIONS (8)
  - ACUTE MYOCARDIAL INFARCTION [None]
  - CARDIAC FAILURE CONGESTIVE [None]
  - CEREBROVASCULAR ACCIDENT [None]
  - CONDUCTION DISORDER [None]
  - DEMENTIA ALZHEIMER'S TYPE [None]
  - ELECTROCARDIOGRAM ABNORMAL [None]
  - VENTRICULAR EXTRASYSTOLES [None]
  - VENTRICULAR TACHYCARDIA [None]
